FAERS Safety Report 4992347-5 (Version None)
Quarter: 2006Q1

REPORT INFORMATION
  Report Type: 
  Country: None (occurrence: None)
  Receive Date: 20060315
  Receipt Date: 20050525
  Transmission Date: 20060701
  Serious: Yes (Hospitalization, Other)
  Sender: FDA-Public Use
  Company Number: USA050496395

PATIENT
  Age: 54 Year
  Sex: Male

DRUGS (5)
  1. ALIMTA [Suspect]
     Indication: BLADDER CANCER
  2. GEMZAR [Suspect]
     Indication: BLADDER CANCER
  3. VITAMIN B12 [Concomitant]
  4. FOLIC ACID [Concomitant]
  5. DEXAMETHASONE [Concomitant]

REACTIONS (6)
  - ANAEMIA [None]
  - ANOREXIA [None]
  - FATIGUE [None]
  - HAEMOLYTIC ANAEMIA [None]
  - MALIGNANT NEOPLASM PROGRESSION [None]
  - THROMBOCYTOPENIA [None]
